FAERS Safety Report 25297445 (Version 3)
Quarter: 2025Q2

REPORT INFORMATION
  Report Type: Spontaneous
  Country: US (occurrence: US)
  Receive Date: 20250511
  Receipt Date: 20250520
  Transmission Date: 20250717
  Serious: Yes (Other)
  Sender: SANOFI AVENTIS
  Company Number: US-SA-2025SA132030

PATIENT
  Age: 1 Year
  Sex: Male
  Weight: 10.91 kg

DRUGS (1)
  1. DUPIXENT [Suspect]
     Active Substance: DUPILUMAB
     Indication: Dermatitis atopic
     Dosage: 200 MG, Q4W
     Route: 058
     Dates: start: 20250313, end: 2025

REACTIONS (6)
  - Pneumonia [Unknown]
  - Bronchitis [Unknown]
  - Ear infection [Unknown]
  - Pyrexia [Recovering/Resolving]
  - Viral infection [Recovering/Resolving]
  - Vomiting [Recovering/Resolving]

NARRATIVE: CASE EVENT DATE: 20250101
